FAERS Safety Report 9344450 (Version 3)
Quarter: 2013Q3

REPORT INFORMATION
  Report Type: Report from Study
  Country: CL (occurrence: CL)
  Receive Date: 20130612
  Receipt Date: 20130805
  Transmission Date: 20140515
  Serious: Yes (Life-Threatening, Hospitalization, Other)
  Sender: FDA-Public Use
  Company Number: PHHY2013CL059699

PATIENT
  Age: 71 Year
  Sex: Female

DRUGS (5)
  1. ACLASTA [Suspect]
     Indication: OSTEOPOROSIS
     Dosage: YEARLY
     Route: 042
     Dates: start: 20120906
  2. PROPANOLOL [Concomitant]
     Route: 048
  3. AEROITAN                           /01414101/ [Concomitant]
     Route: 048
  4. RAVOTRIL [Concomitant]
     Route: 048
  5. OMEPRAZOL//OMEPRAZOLE [Concomitant]
     Indication: GASTRITIS

REACTIONS (17)
  - Sudden death [Recovering/Resolving]
  - Chest pain [Recovering/Resolving]
  - Presyncope [Recovering/Resolving]
  - Syncope [Recovered/Resolved]
  - Loss of consciousness [Unknown]
  - Diplopia [Unknown]
  - Fall [Unknown]
  - Cranial nerve injury [Unknown]
  - Cataract [Unknown]
  - Eye injury [Not Recovered/Not Resolved]
  - Abdominal distension [Unknown]
  - Depressed mood [Unknown]
  - Oesophageal stenosis [Unknown]
  - Oesophageal spasm [Unknown]
  - Weight decreased [Recovering/Resolving]
  - Fatigue [Unknown]
  - Chills [Unknown]
